FAERS Safety Report 12890550 (Version 1)
Quarter: 2016Q4

REPORT INFORMATION
  Report Type: Spontaneous
  Country: US (occurrence: US)
  Receive Date: 20161027
  Receipt Date: 20161027
  Transmission Date: 20170207
  Serious: No
  Sender: FDA-Public Use
  Company Number: US-JAZZ-2016-US-015574

PATIENT
  Age: 22 Year
  Sex: Female

DRUGS (7)
  1. XYREM [Suspect]
     Active Substance: SODIUM OXYBATE
     Dosage: 3 G, BID
     Route: 048
     Dates: start: 201608
  2. BENZTROPINE MESILATE [Concomitant]
     Active Substance: BENZTROPINE MESYLATE
  3. XYREM [Suspect]
     Active Substance: SODIUM OXYBATE
     Indication: HYPERSOMNIA
     Dosage: 2.25 G, BID
     Route: 048
     Dates: start: 201607, end: 201608
  4. ZIPRASIDONE HCL [Concomitant]
     Active Substance: ZIPRASIDONE HYDROCHLORIDE
  5. ALDACTONE [Concomitant]
     Active Substance: SPIRONOLACTONE
  6. PROVIGIL [Concomitant]
     Active Substance: MODAFINIL
  7. LAMICTAL [Concomitant]
     Active Substance: LAMOTRIGINE

REACTIONS (1)
  - Tooth extraction [Unknown]

NARRATIVE: CASE EVENT DATE: 20160815
